FAERS Safety Report 5936260-5 (Version None)
Quarter: 2008Q4

REPORT INFORMATION
  Report Type: 
  Country: None (occurrence: None)
  Receive Date: 20081030
  Receipt Date: 20081023
  Transmission Date: 20090506
  Serious: Yes (Hospitalization)
  Sender: FDA-Public Use
  Company Number: FR-PFIZER INC-2008090022

PATIENT
  Age: 71 Year
  Sex: Female

DRUGS (5)
  1. AMLOD [Suspect]
     Route: 048
  2. ESCITALOPRAM [Suspect]
     Indication: DEPRESSION
     Route: 048
     Dates: start: 20080530, end: 20080601
  3. VERATRAN [Suspect]
     Indication: INSOMNIA
     Dosage: TEXT:EVERY DAY
     Route: 048
     Dates: start: 20080530, end: 20080601
  4. IMOVANE [Suspect]
     Route: 048
     Dates: end: 20080606
  5. NIFLURIL [Suspect]
     Route: 048
     Dates: end: 20080606

REACTIONS (1)
  - FALL [None]
